FAERS Safety Report 4437639-3 (Version None)
Quarter: 2004Q3

REPORT INFORMATION
  Report Type: 
  Country: None (occurrence: None)
  Receive Date: 20040831
  Receipt Date: 20040823
  Transmission Date: 20050211
  Serious: Yes (Hospitalization)
  Sender: FDA-Public Use
  Company Number: PHRM2004FR02655

PATIENT
  Age: 34 Year
  Sex: Female

DRUGS (1)
  1. MIACALCIC / SMC [Suspect]
     Indication: REFLEX SYMPATHETIC DYSTROPHY
     Route: 030
     Dates: start: 20040720, end: 20040720

REACTIONS (11)
  - C-REACTIVE PROTEIN INCREASED [None]
  - DIZZINESS [None]
  - ELECTROCARDIOGRAM ST SEGMENT DEPRESSION [None]
  - HYPOKALAEMIA [None]
  - HYPOTENSION [None]
  - MYOCARDIAL ISCHAEMIA [None]
  - NAUSEA [None]
  - PYREXIA [None]
  - SINUS ARRHYTHMIA [None]
  - VERTIGO [None]
  - VOMITING [None]
